FAERS Safety Report 21324478 (Version 1)
Quarter: 2022Q3

REPORT INFORMATION
  Report Type: Spontaneous
  Country: US (occurrence: None)
  Receive Date: 20220911
  Receipt Date: 20220911
  Transmission Date: 20221027
  Serious: Yes (Other)
  Sender: FDA-Public Use
  Company Number: None

PATIENT
  Age: 19 Year
  Sex: Female
  Weight: 72 kg

DRUGS (2)
  1. MAGNESIUM CITRATE [Suspect]
     Active Substance: MAGNESIUM CITRATE
     Indication: Product used for unknown indication
     Dates: start: 20220715, end: 20220722
  2. VITAMINS [Concomitant]
     Active Substance: VITAMINS

REACTIONS (5)
  - Recalled product administered [None]
  - Product contamination microbial [None]
  - Pyrexia [None]
  - Chills [None]
  - Diarrhoea [None]

NARRATIVE: CASE EVENT DATE: 20220726
